FAERS Safety Report 23389022 (Version 2)
Quarter: 2024Q1

REPORT INFORMATION
  Report Type: Spontaneous
  Country: US (occurrence: US)
  Receive Date: 20240110
  Receipt Date: 20240210
  Transmission Date: 20240410
  Serious: Yes (Other)
  Sender: FDA-Public Use
  Company Number: US-ABBVIE-5576972

PATIENT
  Age: 32 Year
  Sex: Female
  Weight: 78 kg

DRUGS (5)
  1. HUMIRA [Suspect]
     Active Substance: ADALIMUMAB
     Indication: Crohn^s disease
     Dosage: TIME INTERVAL: TOTAL
     Route: 058
     Dates: start: 20231221, end: 20231221
  2. HUMIRA [Suspect]
     Active Substance: ADALIMUMAB
     Dosage: FREQUENCY TEXT: 2 LOADING
     Route: 058
     Dates: start: 20240104, end: 20240118
  3. CHONDROITIN SULFATE (BOVINE)\GLUCOSAMINE HYDROCHLORIDE [Concomitant]
     Active Substance: CHONDROITIN SULFATE (BOVINE)\GLUCOSAMINE HYDROCHLORIDE
     Indication: Product used for unknown indication
  4. AMITRIPTYLINE [Concomitant]
     Active Substance: AMITRIPTYLINE
     Indication: Product used for unknown indication
     Dates: start: 20210901, end: 20240131
  5. SELENIUM [Concomitant]
     Active Substance: SELENIUM
     Indication: Product used for unknown indication
     Dosage: 2.5% LOTION SKIN?FREQUENCY TEXT: DAILY
     Dates: start: 20231213

REACTIONS (7)
  - Adenomyosis [Recovering/Resolving]
  - Abdominal pain [Unknown]
  - Heavy menstrual bleeding [Unknown]
  - Nausea [Unknown]
  - Adenomyosis [Recovered/Resolved]
  - Syncope [Unknown]
  - Menstrual clots [Unknown]

NARRATIVE: CASE EVENT DATE: 20231201
